FAERS Safety Report 4371454-4 (Version None)
Quarter: 2004Q2

REPORT INFORMATION
  Report Type: 
  Country: None (occurrence: None)
  Receive Date: 20040601
  Receipt Date: 20040520
  Transmission Date: 20050107
  Serious: Yes (Other)
  Sender: FDA-Public Use
  Company Number: 206667

PATIENT
  Age: 25 Year
  Sex: Male

DRUGS (1)
  1. XOLAIR [Suspect]
     Indication: ASTHMA
     Dosage: 375 MG Q2W
     Dates: start: 20040101

REACTIONS (2)
  - ANAPHYLACTIC REACTION [None]
  - POST PROCEDURAL COMPLICATION [None]
